FAERS Safety Report 14696341 (Version 2)
Quarter: 2018Q2

REPORT INFORMATION
  Report Type: Spontaneous
  Country: TW (occurrence: TW)
  Receive Date: 20180329
  Receipt Date: 20180404
  Transmission Date: 20180711
  Serious: Yes (Hospitalization, Other)
  Sender: FDA-Public Use
  Company Number: TW-AMGEN-TWNSP2018042192

PATIENT
  Age: 71 Year
  Sex: Female

DRUGS (4)
  1. LEFLUMIDE [Concomitant]
     Dosage: 2 DF, QD
  2. MOBIC [Concomitant]
     Active Substance: MELOXICAM
     Dosage: 1 DF, QD
  3. PREDNISOLONE. [Concomitant]
     Active Substance: PREDNISOLONE
     Dosage: 4 MG, BID
  4. ENBREL [Suspect]
     Active Substance: ETANERCEPT
     Indication: RHEUMATOID ARTHRITIS
     Dosage: 25MG QW
     Route: 058
     Dates: start: 20040713

REACTIONS (3)
  - Gastrointestinal haemorrhage [Recovered/Resolved]
  - Product use issue [Unknown]
  - Gastrointestinal ulcer [Unknown]

NARRATIVE: CASE EVENT DATE: 20040713
